FAERS Safety Report 7960342-X (Version None)
Quarter: 2011Q4

REPORT INFORMATION
  Report Type: 
  Country: None (occurrence: None)
  Receive Date: 20111206
  Receipt Date: 20111206
  Transmission Date: 20120403
  Serious: Yes (Hospitalization)
  Sender: FDA-Public Use
  Company Number: PHHO2011TW00934

PATIENT
  Sex: Male
  Weight: 64 kg

DRUGS (2)
  1. PANTOPRAZOLE [Concomitant]
  2. AFINITOR [Suspect]
     Indication: METASTATIC GASTRIC CANCER
     Dosage: 10 MG, QD
     Route: 048
     Dates: start: 20101111, end: 20110112

REACTIONS (6)
  - ANAEMIA [None]
  - GASTROINTESTINAL ULCER [None]
  - ERYTHEMA [None]
  - UPPER GASTROINTESTINAL HAEMORRHAGE [None]
  - MELAENA [None]
  - GASTRITIS [None]
